FAERS Safety Report 21499113 (Version 3)
Quarter: 2023Q1

REPORT INFORMATION
  Report Type: Report from Study
  Country: JP (occurrence: None)
  Receive Date: 20221024
  Receipt Date: 20230324
  Transmission Date: 20230417
  Serious: Yes (Death, Hospitalization)
  Sender: FDA-Public Use
  Company Number: 2022A352880

PATIENT
  Age: 77 Year
  Sex: Male

DRUGS (9)
  1. ONDEXXYA [Suspect]
     Active Substance: ANDEXANET ALFA
     Indication: Cerebral haemorrhage
     Dosage: AS-REQUIRED
     Route: 042
     Dates: start: 20221006
  2. METGLUCO [Concomitant]
     Active Substance: METFORMIN HYDROCHLORIDE
     Dosage: NUMBER OF SEPARATE DOSAGES UNKNOWN
     Route: 065
  3. LINAGLIPTIN [Concomitant]
     Active Substance: LINAGLIPTIN
     Dosage: NUMBER OF SEPARATE DOSAGES UNKNOWN
     Route: 065
  4. GLICLAZIDE [Concomitant]
     Active Substance: GLICLAZIDE
     Dosage: NUMBER OF SEPARATE DOSAGES UNKNOWN
     Route: 065
  5. MICARDIS [Concomitant]
     Active Substance: TELMISARTAN
     Dosage: NUMBER OF SEPARATE DOSAGES UNKNOWN
     Route: 065
  6. XARELTO [Concomitant]
     Active Substance: RIVAROXABAN
     Dosage: NUMBER OF SEPARATE DOSAGES UNKNOWN
     Route: 065
  7. PILSICAINIDE HYDROCHLORIDE [Concomitant]
     Active Substance: PILSICAINIDE HYDROCHLORIDE
     Dosage: NUMBER OF SEPARATE DOSAGES UNKNOWN
     Route: 065
  8. ROXATIDINE ACETATE HYDROCHLORIDE [Concomitant]
     Active Substance: ROXATIDINE ACETATE HYDROCHLORIDE
     Dosage: NUMBER OF SEPARATE DOSAGES UNKNOWN
     Route: 048
  9. PRAVASTATIN SODIUM [Concomitant]
     Active Substance: PRAVASTATIN SODIUM
     Dosage: NUMBER OF SEPARATE DOSAGES UNKNOWN
     Route: 065

REACTIONS (1)
  - Basal ganglia haemorrhage [Fatal]

NARRATIVE: CASE EVENT DATE: 20221006
